FAERS Safety Report 22159730 (Version 1)
Quarter: 2023Q1

REPORT INFORMATION
  Report Type: Spontaneous
  Country: FR (occurrence: FR)
  Receive Date: 20230331
  Receipt Date: 20230331
  Transmission Date: 20230418
  Serious: Yes (Hospitalization, Other)
  Sender: FDA-Public Use
  Company Number: None

PATIENT
  Age: 81 Year
  Sex: Female
  Weight: 70 kg

DRUGS (3)
  1. TERALITHE [Interacting]
     Active Substance: LITHIUM CARBONATE
     Indication: Bipolar disorder
     Dosage: 800 MG, QD
     Route: 048
     Dates: end: 20230310
  2. HYDROCHLOROTHIAZIDE\IRBESARTAN [Interacting]
     Active Substance: HYDROCHLOROTHIAZIDE\IRBESARTAN
     Indication: Hypertension
     Dosage: 1 DF, QD
     Route: 048
     Dates: start: 20230215, end: 20230310
  3. IRBESARTAN [Interacting]
     Active Substance: IRBESARTAN
     Indication: Hypertension
     Dosage: 150 MG, QD
     Route: 048
     Dates: start: 20221219, end: 20230214

REACTIONS (4)
  - Bradycardia [Recovered/Resolved]
  - Tremor [Recovered/Resolved]
  - Drug interaction [Recovered/Resolved]
  - Overdose [Recovered/Resolved]
